FAERS Safety Report 8113582-3 (Version None)
Quarter: 2012Q1

REPORT INFORMATION
  Report Type: 
  Country: None (occurrence: None)
  Receive Date: 20120203
  Receipt Date: 20120127
  Transmission Date: 20120608
  Serious: Yes (Disabling, Other)
  Sender: FDA-Public Use
  Company Number: US-US-EMD SERONO, INC.-7109814

PATIENT
  Sex: Female

DRUGS (2)
  1. REBIF [Suspect]
     Indication: PRODUCT USED FOR UNKNOWN INDICATION
     Route: 058
     Dates: start: 20110822
  2. REBIF [Suspect]
     Route: 058

REACTIONS (5)
  - BRAIN OEDEMA [None]
  - CATARACT [None]
  - WHITE BLOOD CELL COUNT DECREASED [None]
  - INJECTION SITE HAEMATOMA [None]
  - SINUSITIS [None]
